FAERS Safety Report 15454433 (Version 1)
Quarter: 2018Q4

REPORT INFORMATION
  Report Type: Spontaneous
  Country: US (occurrence: US)
  Receive Date: 20181002
  Receipt Date: 20181002
  Transmission Date: 20190204
  Serious: No
  Sender: FDA-Public Use
  Company Number: US-TEVA-2018-US-960483

PATIENT
  Sex: Female

DRUGS (3)
  1. MELATONIN [Concomitant]
     Active Substance: MELATONIN
     Indication: SLEEP DISORDER
  2. CLONAZEPAM. [Suspect]
     Active Substance: CLONAZEPAM
     Indication: SLEEP DISORDER
     Dosage: 4-5 HOURS.
     Route: 048
  3. CHAMOMILE [Concomitant]
     Active Substance: CHAMOMILE
     Indication: SLEEP DISORDER

REACTIONS (2)
  - Wrong technique in product usage process [Unknown]
  - Dizziness [Unknown]
